FAERS Safety Report 15841159 (Version 1)
Quarter: 2019Q1

REPORT INFORMATION
  Report Type: Spontaneous
  Country: US (occurrence: US)
  Receive Date: 20190118
  Receipt Date: 20190118
  Transmission Date: 20190417
  Serious: Yes (Other)
  Sender: FDA-Public Use
  Company Number: US-HBP-2018US017797

PATIENT
  Sex: Male

DRUGS (2)
  1. VALCHLOR [Suspect]
     Active Substance: MECHLORETHAMINE
     Indication: MYCOSIS FUNGOIDES
     Dosage: 2-3 TIMES A WEEK
     Route: 061
  2. VALCHLOR [Suspect]
     Active Substance: MECHLORETHAMINE
     Indication: MYCOSIS FUNGOIDES
     Dosage: THIN FILM, QD
     Route: 061
     Dates: start: 201810

REACTIONS (7)
  - Intentional dose omission [Recovered/Resolved]
  - Treatment noncompliance [Recovered/Resolved]
  - Drug effect decreased [Not Recovered/Not Resolved]
  - Fall [Unknown]
  - Rash erythematous [Not Recovered/Not Resolved]
  - Rib fracture [Unknown]
  - Pruritus [Not Recovered/Not Resolved]
